FAERS Safety Report 5702210-X (Version None)
Quarter: 2008Q2

REPORT INFORMATION
  Report Type: 
  Country: None (occurrence: None)
  Receive Date: 20080411
  Receipt Date: 20080110
  Transmission Date: 20081010
  Serious: No
  Sender: FDA-Public Use
  Company Number: US-ABBOTT-08P-163-0433579-00

PATIENT
  Sex: Male
  Weight: 86.26 kg

DRUGS (12)
  1. DEPAKOTE [Suspect]
     Indication: DEMENTIA
     Route: 048
  2. DEPAKOTE [Suspect]
     Indication: ABNORMAL BEHAVIOUR
  3. DEPAKOTE [Suspect]
     Indication: AGITATION
  4. HALOPERIDOL [Concomitant]
     Indication: AGITATION
     Route: 048
  5. HALOPERIDOL [Concomitant]
     Indication: DELIRIUM
  6. MEMANTINE HCL [Concomitant]
     Indication: MEMORY IMPAIRMENT
  7. DONEPEZIL HCL [Concomitant]
     Indication: MEMORY IMPAIRMENT
  8. CLOPIDOGREL [Concomitant]
     Indication: VASCULAR DEMENTIA
  9. PARACETAMOL [Concomitant]
     Indication: DRUG USE FOR UNKNOWN INDICATION
  10. MACROGOL [Concomitant]
     Indication: WHEELCHAIR USER
  11. ESOMEPRAZOLE MAGNESIUM [Concomitant]
     Indication: BARRETT'S OESOPHAGUS
  12. OMEPRAZOLE [Concomitant]
     Indication: BARRETT'S OESOPHAGUS

REACTIONS (1)
  - DRUG LEVEL BELOW THERAPEUTIC [None]
